FAERS Safety Report 9057766 (Version 2)
Quarter: 2013Q1

REPORT INFORMATION
  Report Type: Report from Study
  Country: IE (occurrence: IE)
  Receive Date: 20130204
  Receipt Date: 20130225
  Transmission Date: 20140127
  Serious: Yes (Hospitalization)
  Sender: FDA-Public Use
  Company Number: IE-ASTRAZENECA-2013SE06744

PATIENT
  Age: 17 Month
  Sex: Male

DRUGS (4)
  1. SYNAGIS [Suspect]
     Indication: PREMATURE BABY
     Route: 030
     Dates: start: 20121026
  2. VENTOLIN [Concomitant]
  3. RANITIDINE [Concomitant]
  4. ATROVENT [Concomitant]

REACTIONS (4)
  - Bronchiolitis [Recovered/Resolved]
  - Vomiting [Recovered/Resolved]
  - Lower respiratory tract infection [Recovered/Resolved]
  - Pyrexia [Unknown]
